FAERS Safety Report 5949168-6 (Version None)
Quarter: 2008Q4

REPORT INFORMATION
  Report Type: 
  Country: None (occurrence: None)
  Receive Date: 20081111
  Receipt Date: 20081031
  Transmission Date: 20090506
  Serious: Yes (Death, Hospitalization)
  Sender: FDA-Public Use
  Company Number: GB-GENENTECH-270906

PATIENT
  Sex: Female

DRUGS (7)
  1. BEVACIZUMAB [Suspect]
     Indication: OVARIAN EPITHELIAL CANCER
     Dosage: 623 MG, UNK
     Route: 042
     Dates: start: 20080506
  2. BEVACIZUMAB [Suspect]
     Dosage: 823 MG, UNK
  3. PACLITAXEL [Suspect]
     Indication: OVARIAN EPITHELIAL CANCER
     Dosage: 250 MG, UNK
     Route: 042
     Dates: start: 20080414
  4. PACLITAXEL [Suspect]
     Dosage: 360 MG, UNK
  5. PACLITAXEL [Suspect]
     Dosage: 350 MG, UNK
  6. CARBOPLATIN [Suspect]
     Indication: OVARIAN EPITHELIAL CANCER
     Dosage: 650 MG, UNK
     Route: 042
     Dates: start: 20080414
  7. LERCANIDIPINE [Concomitant]
     Indication: DRUG USE FOR UNKNOWN INDICATION
     Dosage: UNK
     Dates: start: 20080425

REACTIONS (3)
  - ABDOMINAL PAIN [None]
  - DEATH [None]
  - DYSPNOEA [None]
